FAERS Safety Report 21284587 (Version 2)
Quarter: 2022Q4

REPORT INFORMATION
  Report Type: Spontaneous
  Country: AU (occurrence: None)
  Receive Date: 20220902
  Receipt Date: 20221123
  Transmission Date: 20230112
  Serious: Yes (Other)
  Sender: FDA-Public Use
  Company Number: AU-ROCHE-3169927

PATIENT
  Age: 43 Year
  Sex: Male

DRUGS (10)
  1. RITUXIMAB [Suspect]
     Active Substance: RITUXIMAB
     Indication: Antisynthetase syndrome
     Route: 065
  2. TOCILIZUMAB [Suspect]
     Active Substance: TOCILIZUMAB
     Indication: Antisynthetase syndrome
     Route: 065
  3. MYCOPHENOLATE MOFETIL [Suspect]
     Active Substance: MYCOPHENOLATE MOFETIL
     Indication: Antisynthetase syndrome
     Route: 065
  4. TACROLIMUS [Suspect]
     Active Substance: TACROLIMUS
     Indication: Antisynthetase syndrome
     Route: 065
  5. CYCLOPHOSPHAMIDE [Suspect]
     Active Substance: CYCLOPHOSPHAMIDE
     Indication: Antisynthetase syndrome
     Route: 065
  6. AZATHIOPRINE [Suspect]
     Active Substance: AZATHIOPRINE
     Indication: Antisynthetase syndrome
     Route: 065
  7. CYCLOSPORINE [Suspect]
     Active Substance: CYCLOSPORINE
     Indication: Antisynthetase syndrome
     Route: 065
  8. METHOTREXATE [Suspect]
     Active Substance: METHOTREXATE
     Indication: Antisynthetase syndrome
     Route: 065
  9. INFLIXIMAB [Suspect]
     Active Substance: INFLIXIMAB
     Indication: Antisynthetase syndrome
     Route: 065
  10. IMMUNE GLOBULIN NOS [Suspect]
     Active Substance: IMMUNE GLOBULIN NOS
     Indication: Antisynthetase syndrome
     Route: 065

REACTIONS (4)
  - Disease progression [Not Recovered/Not Resolved]
  - Interstitial lung disease [Not Recovered/Not Resolved]
  - Myositis [Not Recovered/Not Resolved]
  - Treatment failure [Unknown]
